FAERS Safety Report 13929814 (Version 1)
Quarter: 2017Q3

REPORT INFORMATION
  Report Type: Spontaneous
  Country: TH (occurrence: TH)
  Receive Date: 20170901
  Receipt Date: 20170901
  Transmission Date: 20171127
  Serious: Yes (Hospitalization)
  Sender: FDA-Public Use
  Company Number: TH-SA-2017SA157833

PATIENT
  Age: 26 Year
  Sex: Male

DRUGS (1)
  1. THYMOGLOBULINE [Suspect]
     Active Substance: LAPINE T-LYMPHOCYTE IMMUNE GLOBULIN
     Indication: APLASTIC ANAEMIA
     Route: 042
     Dates: start: 20150831, end: 20150904

REACTIONS (6)
  - Serum sickness [Recovered/Resolved]
  - Rash maculo-papular [Recovering/Resolving]
  - Febrile neutropenia [Recovered/Resolved]
  - Lymphadenopathy [Recovered/Resolved]
  - Sinus bradycardia [Recovered/Resolved]
  - Arthralgia [Recovered/Resolved]

NARRATIVE: CASE EVENT DATE: 20150831
